FAERS Safety Report 24215564 (Version 1)
Quarter: 2024Q3

REPORT INFORMATION
  Report Type: Spontaneous
  Country: NL (occurrence: NL)
  Receive Date: 20240816
  Receipt Date: 20240816
  Transmission Date: 20241016
  Serious: Yes (Other)
  Sender: Haleon PLC
  Company Number: NL-OTSUKA-2023_015693

PATIENT
  Age: 9 Year
  Sex: Male

DRUGS (13)
  1. FLUTICASONE FUROATE [Suspect]
     Active Substance: FLUTICASONE FUROATE
     Indication: Asthma
     Dosage: 1 DF
     Route: 045
     Dates: start: 20230320
  2. BECLOMETHASONE DIPROPIONATE [Suspect]
     Active Substance: BECLOMETHASONE DIPROPIONATE
     Indication: Asthma
     Dosage: 2 DOSAGE FORM, BID
     Route: 055
     Dates: start: 20230320
  3. KLYSMA SORBIT [Concomitant]
     Indication: Constipation
     Dosage: UNK
     Route: 054
     Dates: start: 20230327
  4. CRIZOTINIB [Suspect]
     Active Substance: CRIZOTINIB
     Indication: Neoplasm malignant
     Dosage: 220 MG, BID
     Route: 048
     Dates: start: 20230211, end: 20230523
  5. CRIZOTINIB [Suspect]
     Active Substance: CRIZOTINIB
     Dosage: 200 MG/M2
     Route: 048
  6. METOCLOPRAMIDE [Suspect]
     Active Substance: METOCLOPRAMIDE
     Indication: Nausea
     Dosage: TIME INTERVAL: AS NECESSARY: 12 MG AS NEEDED (IF NECESSARY)
     Route: 048
     Dates: start: 20230301, end: 20230410
  7. CHOLECALCIFEROL [Suspect]
     Active Substance: CHOLECALCIFEROL
     Indication: Prophylaxis
     Dosage: 400 IU
     Route: 048
     Dates: start: 20230320
  8. POLYETHYLENE GLYCOLS [Suspect]
     Active Substance: POLYETHYLENE GLYCOLS
     Indication: Constipation
     Dosage: 10- 20 G,
     Route: 048
     Dates: start: 20230320
  9. GRANISETRON HYDROCHLORIDE [Suspect]
     Active Substance: GRANISETRON HYDROCHLORIDE
     Indication: Nausea
     Dosage: TIME INTERVAL: AS NECESSARY: 2 MG IF NECESSARY
     Route: 048
     Dates: start: 20230508
  10. MELATONIN [Suspect]
     Active Substance: MELATONIN
     Indication: Autism spectrum disorder
     Dosage: 0.5 MG
     Route: 048
     Dates: start: 20230320
  11. DESLORATADINE [Suspect]
     Active Substance: DESLORATADINE
     Indication: Asthma
     Dosage: TIME INTERVAL: AS NECESSARY: 2.5 MG IF NECESSARY
     Route: 048
     Dates: start: 20230320
  12. ALBUTEROL [Suspect]
     Active Substance: ALBUTEROL
     Indication: Asthma
     Dosage: 1 - 4 DOSE, 8X/DAY, IF NECESSARY
     Route: 055
     Dates: start: 20230320
  13. ARIPIPRAZOLE [Suspect]
     Active Substance: ARIPIPRAZOLE
     Indication: Autism spectrum disorder
     Dosage: 2.5 MG
     Route: 048
     Dates: start: 20230331

REACTIONS (4)
  - Sinus bradycardia [Recovered/Resolved]
  - Electrocardiogram abnormal [Unknown]
  - Heart rate decreased [Unknown]
  - Cyanosis [Unknown]

NARRATIVE: CASE EVENT DATE: 20230522
